FAERS Safety Report 5958199-1 (Version None)
Quarter: 2008Q4

REPORT INFORMATION
  Report Type: 
  Country: None (occurrence: None)
  Receive Date: 20081117
  Receipt Date: 20081117
  Transmission Date: 20090506
  Serious: Yes (Life-Threatening, Other)
  Sender: FDA-Public Use
  Company Number: None

PATIENT
  Age: 23 Year
  Sex: Female
  Weight: 72.5755 kg

DRUGS (3)
  1. ZOLOFT [Suspect]
     Indication: ANXIETY
  2. ZOLOFT [Suspect]
     Indication: DEPRESSION
  3. ZOLOFT [Suspect]
     Indication: PANIC DISORDER

REACTIONS (6)
  - EMOTIONAL DISORDER [None]
  - FEELING ABNORMAL [None]
  - MOVEMENT DISORDER [None]
  - PANIC REACTION [None]
  - PARANOIA [None]
  - SUICIDAL IDEATION [None]
